FAERS Safety Report 9448047 (Version 1)
Quarter: 2013Q3

REPORT INFORMATION
  Report Type: Spontaneous
  Country: US (occurrence: US)
  Receive Date: 20130808
  Receipt Date: 20130808
  Transmission Date: 20140515
  Serious: Yes (Other)
  Sender: FDA-Public Use
  Company Number: US-BAYER-2013-094619

PATIENT
  Age: 72 Year
  Sex: Male

DRUGS (4)
  1. STIVARGA [Suspect]
     Indication: COLORECTAL CANCER METASTATIC
     Dosage: 4 TABLETS
     Dates: start: 20130731, end: 20130731
  2. STIVARGA [Suspect]
     Indication: METASTASES TO LIVER
  3. CLONIDINE [Concomitant]
     Indication: BLOOD PRESSURE MANAGEMENT
  4. HYDROCHLOROTHIAZIDE [Concomitant]
     Indication: BLOOD PRESSURE MANAGEMENT

REACTIONS (3)
  - Hepatic pain [None]
  - Aphagia [None]
  - Blood pressure increased [None]
